FAERS Safety Report 23546591 (Version 1)
Quarter: 2024Q1

REPORT INFORMATION
  Report Type: Other
  Country: NL (occurrence: None)
  Receive Date: 20240221
  Receipt Date: 20240221
  Transmission Date: 20240410
  Serious: Yes (Life-Threatening, Hospitalization)
  Sender: FDA-Public Use
  Company Number: NL-Umedica-000002

PATIENT
  Age: 18 Year
  Sex: Female
  Weight: 65 kg

DRUGS (1)
  1. CARBAMAZEPINE [Suspect]
     Active Substance: CARBAMAZEPINE
     Indication: Product used for unknown indication
     Dosage: 43 ER TABLETS OF CBZ 400MG
     Route: 048

REACTIONS (9)
  - Toxicity to various agents [Recovering/Resolving]
  - Respiratory failure [Recovering/Resolving]
  - Intentional overdose [Unknown]
  - Hepatic enzyme increased [Recovering/Resolving]
  - Headache [Recovering/Resolving]
  - Myalgia [Recovering/Resolving]
  - Vomiting [Recovered/Resolved]
  - Aspiration [Recovering/Resolving]
  - Somnolence [Recovering/Resolving]
